FAERS Safety Report 25120976 (Version 1)
Quarter: 2025Q1

REPORT INFORMATION
  Report Type: Spontaneous
  Country: KY (occurrence: US)
  Receive Date: 20250326
  Receipt Date: 20250326
  Transmission Date: 20250409
  Serious: No
  Sender: BRECKENRIDGE PHARMACEUTICAL, INC.
  Company Number: US-Breckenridge Pharmaceutical, Inc.-2173663

PATIENT
  Age: 72 Year
  Sex: Male

DRUGS (1)
  1. DULOXETINE HYDROCHLORIDE [Suspect]
     Active Substance: DULOXETINE HYDROCHLORIDE

REACTIONS (5)
  - Cold sweat [Unknown]
  - Alopecia [Unknown]
  - Chromaturia [Unknown]
  - Pruritus [Unknown]
  - Vision blurred [Unknown]
